FAERS Safety Report 6393067-5 (Version None)
Quarter: 2009Q4

REPORT INFORMATION
  Report Type: 
  Country: None (occurrence: None)
  Receive Date: 20091008
  Receipt Date: 20090929
  Transmission Date: 20100525
  Serious: Yes (Other)
  Sender: FDA-Public Use
  Company Number: US-ROCHE-649977

PATIENT
  Sex: Female

DRUGS (3)
  1. BONIVA [Suspect]
     Indication: OSTEOPOROSIS
     Dosage: DOSE: 150
     Route: 048
     Dates: start: 20060615, end: 20090804
  2. TOPROL-XL [Concomitant]
     Indication: PALPITATIONS
     Dosage: DOSE: 25, FREQUENCY: PER 3-4 WEEK
     Route: 048
  3. ZOCOR [Concomitant]
     Indication: HYPERLIPIDAEMIA
     Dosage: DOSE: 40, FREQUENCY: DAILY
     Route: 048

REACTIONS (1)
  - FEMUR FRACTURE [None]
